FAERS Safety Report 5817974-4 (Version None)
Quarter: 2008Q3

REPORT INFORMATION
  Report Type: 
  Country: None (occurrence: None)
  Receive Date: 20080722
  Receipt Date: 20080701
  Transmission Date: 20090109
  Serious: No
  Sender: FDA-Public Use
  Company Number: US-BOEHRINGER INGELHEIM GMBH, GERMANY-2008-BP-10401BP

PATIENT
  Age: 74 Year
  Sex: Female

DRUGS (2)
  1. MICARDIS [Suspect]
     Indication: HYPERTENSION
     Dates: start: 20050101
  2. SODIUM FLOURIDE + POTASSIUM TOOTHPASTE [Suspect]
     Indication: DENTAL CLEANING
     Dates: start: 20070207

REACTIONS (3)
  - COUGH [None]
  - INCREASED UPPER AIRWAY SECRETION [None]
  - SALIVARY HYPERSECRETION [None]
